FAERS Safety Report 10801250 (Version 1)
Quarter: 2015Q1

REPORT INFORMATION
  Report Type: Report from Study
  Country: CA (occurrence: CA)
  Receive Date: 20150217
  Receipt Date: 20150217
  Transmission Date: 20150721
  Serious: Yes (Death, Hospitalization, Other)
  Sender: FDA-Public Use
  Company Number: CA-AMGEN-CANSL2015012870

PATIENT
  Age: 77 Year
  Sex: Female

DRUGS (1)
  1. PROLIA [Suspect]
     Active Substance: DENOSUMAB
     Indication: PRODUCT USED FOR UNKNOWN INDICATION
     Dosage: UNK
     Route: 065
     Dates: start: 20140515

REACTIONS (6)
  - Diabetes mellitus [Unknown]
  - Hepatic cancer metastatic [Fatal]
  - Pancreatic carcinoma metastatic [Fatal]
  - Fall [Unknown]
  - Metastases to lung [Fatal]
  - Metastases to bone [Fatal]

NARRATIVE: CASE EVENT DATE: 201412
